FAERS Safety Report 22247213 (Version 2)
Quarter: 2023Q2

REPORT INFORMATION
  Report Type: Spontaneous
  Country: IR (occurrence: IR)
  Receive Date: 20230424
  Receipt Date: 20230606
  Transmission Date: 20230722
  Serious: Yes (Hospitalization)
  Sender: FDA-Public Use
  Company Number: IR-STRIDES ARCOLAB LIMITED-2023SP005770

PATIENT
  Age: 36 Year
  Sex: Female

DRUGS (2)
  1. COLCHICINE [Suspect]
     Active Substance: COLCHICINE
     Indication: Product used for unknown indication
     Dosage: 20 TABLETS, UNKNOWN (INGESTED 20 TABLETS OF 1 MG FORMULATION)
     Route: 048
  2. ACETAMINOPHEN [Suspect]
     Active Substance: ACETAMINOPHEN
     Indication: Product used for unknown indication
     Dosage: 10 TABLETS, UNKNOWN (INGESTED 10 TABLETS OF 500 MG FORMULATION)
     Route: 065

REACTIONS (8)
  - Gastrointestinal disorder [Recovered/Resolved]
  - Hypokalaemia [Recovered/Resolved]
  - Hepatic enzyme increased [Recovered/Resolved]
  - Intentional product misuse [Unknown]
  - Nausea [Recovered/Resolved]
  - Vomiting [Recovered/Resolved]
  - Toxicity to various agents [Unknown]
  - Overdose [Unknown]
